FAERS Safety Report 14881895 (Version 2)
Quarter: 2019Q1

REPORT INFORMATION
  Report Type: Spontaneous
  Country: FR (occurrence: FR)
  Receive Date: 20180511
  Receipt Date: 20190311
  Transmission Date: 20190417
  Serious: Yes (Hospitalization, Other)
  Sender: FDA-Public Use
  Company Number: FR-AUROBINDO-AUR-APL-2018-025181

PATIENT

DRUGS (16)
  1. DURVALUMAB. [Suspect]
     Active Substance: DURVALUMAB
     Dosage: 675 MILLIGRAM, 2 WEEK
     Route: 042
     Dates: start: 20180314
  2. VIAGRA [Concomitant]
     Active Substance: SILDENAFIL CITRATE
     Indication: PRODUCT USED FOR UNKNOWN INDICATION
     Dosage: UNK, 50, IF NEEDED
     Route: 065
  3. PRAVASTATIN. [Concomitant]
     Active Substance: PRAVASTATIN
     Dosage: 20 MG (ONCE A DAY ON EVENING) ()
     Route: 065
  4. PERINDOPRIL [Suspect]
     Active Substance: PERINDOPRIL
     Indication: HYPERTENSION
     Dosage: 2 MILLIGRAM, TWO TIMES A DAY (12 HOUR)
     Route: 048
  5. DURVALUMAB. [Suspect]
     Active Substance: DURVALUMAB
     Dosage: 665 MILLIGRAM, 2 WEEK
     Route: 042
     Dates: start: 20180611
  6. DURVALUMAB. [Suspect]
     Active Substance: DURVALUMAB
     Dosage: 660 MILLIGRAM, 2 WEEK
     Route: 042
     Dates: start: 20180314
  7. GANFORT [Concomitant]
     Active Substance: BIMATOPROST\TIMOLOL
     Indication: PRODUCT USED FOR UNKNOWN INDICATION
     Dosage: UNK, (IN EACH EYE) ON EVENING
     Route: 031
  8. DURVALUMAB. [Suspect]
     Active Substance: DURVALUMAB
     Dosage: 675 MILLIGRAM, 2 WEEK
     Route: 042
     Dates: start: 20180530
  9. FLUOXETINE [Concomitant]
     Active Substance: FLUOXETINE HYDROCHLORIDE
     Dosage: UNK, 20 MG (1/2 ON MORNING)
     Route: 065
  10. VIAGRA [Concomitant]
     Active Substance: SILDENAFIL CITRATE
     Dosage: UNK, 50, IF NEEDED
  11. PERINDOPRIL [Suspect]
     Active Substance: PERINDOPRIL
     Indication: HYPERTENSION
     Dosage: 2 MILLIGRAM, TWO TIMES A DAY (12 HOUR)
     Route: 048
  12. DURVALUMAB. [Suspect]
     Active Substance: DURVALUMAB
     Indication: NON-SMALL CELL LUNG CANCER
     Dosage: 670 MILLIGRAM, 2 WEEK
     Route: 042
  13. DURVALUMAB. [Suspect]
     Active Substance: DURVALUMAB
     Dosage: UNK
     Route: 042
  14. PRAVASTATIN. [Concomitant]
     Active Substance: PRAVASTATIN
     Indication: PRODUCT USED FOR UNKNOWN INDICATION
     Dosage: 20 MG (ONCE A DAY ON EVENING) ()
     Route: 065
  15. DURVALUMAB. [Suspect]
     Active Substance: DURVALUMAB
     Dosage: 670 MILLIGRAM
     Route: 042
     Dates: start: 20180314
  16. FLUOXETINE [Concomitant]
     Active Substance: FLUOXETINE HYDROCHLORIDE
     Indication: PRODUCT USED FOR UNKNOWN INDICATION
     Dosage: UNK, 20 MG (1/2 ON MORNING)
     Route: 065

REACTIONS (15)
  - Rash pruritic [Unknown]
  - Chills [Unknown]
  - Diarrhoea [Unknown]
  - Thyroxine free abnormal [Unknown]
  - Hypotension [Recovered/Resolved]
  - Hyperhidrosis [Unknown]
  - Hypophysitis [Unknown]
  - Thyroiditis [Unknown]
  - Adrenal insufficiency [Unknown]
  - Gamma-glutamyltransferase increased [Recovering/Resolving]
  - Hyperthyroidism [Not Recovered/Not Resolved]
  - Malaise [Unknown]
  - Atrial fibrillation [Unknown]
  - Asthenia [Unknown]
  - Mixed liver injury [Recovering/Resolving]

NARRATIVE: CASE EVENT DATE: 201804
